FAERS Safety Report 23969765 (Version 4)
Quarter: 2025Q4

REPORT INFORMATION
  Report Type: Spontaneous
  Country: EU (occurrence: EU)
  Receive Date: 20240613
  Receipt Date: 20251027
  Transmission Date: 20260117
  Serious: Yes (Other)
  Sender: MSN LABORATORIES PRIVATE LIMITED
  Company Number: EU-MSNLABS-2024MSNLIT01255

PATIENT

DRUGS (45)
  1. CARMUSTINE [Suspect]
     Active Substance: CARMUSTINE
     Indication: Peripheral T-cell lymphoma unspecified
     Dosage: HIGH-DOSE BEAM
     Route: 065
     Dates: start: 20230906
  2. CARMUSTINE [Suspect]
     Active Substance: CARMUSTINE
     Indication: Chemotherapy
  3. CARMUSTINE [Suspect]
     Active Substance: CARMUSTINE
     Indication: Prophylaxis
  4. CARMUSTINE [Suspect]
     Active Substance: CARMUSTINE
     Indication: Autologous haematopoietic stem cell transplant
  5. CARMUSTINE [Suspect]
     Active Substance: CARMUSTINE
     Indication: Peripheral T-cell lymphoma unspecified
  6. CARMUSTINE [Suspect]
     Active Substance: CARMUSTINE
     Indication: Autologous haematopoietic stem cell transplant
  7. ETOPOSIDE [Suspect]
     Active Substance: ETOPOSIDE
     Indication: Peripheral T-cell lymphoma unspecified
     Dosage: HIGH-DOSE BEAM CHEMOTHERAPY
     Route: 065
     Dates: start: 20230906
  8. ETOPOSIDE [Suspect]
     Active Substance: ETOPOSIDE
     Indication: Chemotherapy
     Dosage: 100 MG/M IV D1-3, 6 CYCLES OF CHEPA
     Route: 042
     Dates: start: 20230330, end: 20230724
  9. ETOPOSIDE [Suspect]
     Active Substance: ETOPOSIDE
     Indication: Prophylaxis
     Dosage: 100 MG
     Route: 065
     Dates: start: 20230325
  10. ETOPOSIDE [Suspect]
     Active Substance: ETOPOSIDE
     Indication: Autologous haematopoietic stem cell transplant
  11. ETOPOSIDE [Suspect]
     Active Substance: ETOPOSIDE
     Indication: Peripheral T-cell lymphoma unspecified
  12. ETOPOSIDE [Suspect]
     Active Substance: ETOPOSIDE
     Indication: Peripheral T-cell lymphoma unspecified
  13. CYTARABINE [Suspect]
     Active Substance: CYTARABINE
     Indication: Peripheral T-cell lymphoma unspecified
     Dosage: HIGH-DOSE BEAM
     Route: 065
     Dates: start: 20230906
  14. CYTARABINE [Suspect]
     Active Substance: CYTARABINE
     Indication: Chemotherapy
  15. CYTARABINE [Suspect]
     Active Substance: CYTARABINE
     Indication: Prophylaxis
  16. CYTARABINE [Suspect]
     Active Substance: CYTARABINE
     Indication: Autologous haematopoietic stem cell transplant
  17. CYTARABINE [Suspect]
     Active Substance: CYTARABINE
     Indication: Peripheral T-cell lymphoma unspecified
  18. CYTARABINE [Suspect]
     Active Substance: CYTARABINE
     Indication: Peripheral T-cell lymphoma unspecified
  19. MELPHALAN [Suspect]
     Active Substance: MELPHALAN
     Indication: Peripheral T-cell lymphoma unspecified
     Dosage: HIGH-DOSE BEAM
     Route: 065
     Dates: start: 20230906
  20. MELPHALAN [Suspect]
     Active Substance: MELPHALAN
     Indication: Chemotherapy
  21. MELPHALAN [Suspect]
     Active Substance: MELPHALAN
     Indication: Prophylaxis
  22. MELPHALAN [Suspect]
     Active Substance: MELPHALAN
     Indication: Peripheral T-cell lymphoma unspecified
  23. MELPHALAN [Suspect]
     Active Substance: MELPHALAN
     Indication: Peripheral T-cell lymphoma unspecified
  24. MELPHALAN [Suspect]
     Active Substance: MELPHALAN
     Indication: Peripheral T-cell lymphoma unspecified
  25. DOXORUBICIN [Suspect]
     Active Substance: DOXORUBICIN
     Indication: Chemotherapy
     Dosage: 50 MG/M IV D1,6 CYCLES OF CHEPA
     Route: 042
     Dates: start: 20230330, end: 20230724
  26. DOXORUBICIN [Suspect]
     Active Substance: DOXORUBICIN
     Indication: Prophylaxis
  27. DOXORUBICIN [Suspect]
     Active Substance: DOXORUBICIN
     Indication: Peripheral T-cell lymphoma unspecified
  28. DOXORUBICIN [Suspect]
     Active Substance: DOXORUBICIN
     Indication: Peripheral T-cell lymphoma unspecified
  29. DOXORUBICIN [Suspect]
     Active Substance: DOXORUBICIN
     Indication: Peripheral T-cell lymphoma unspecified
  30. FILGRASTIM [Suspect]
     Active Substance: FILGRASTIM
     Indication: Chemotherapy
     Dosage: 6 CYCLES OF CHEPA
     Route: 065
     Dates: start: 20230724
  31. BRENTUXIMAB VEDOTIN [Suspect]
     Active Substance: BRENTUXIMAB VEDOTIN
     Indication: Chemotherapy
     Dosage: 1.8 MG/KG IV D1, 6 CYCLES OF CHEPA
     Route: 042
     Dates: start: 20230330, end: 20230724
  32. BRENTUXIMAB VEDOTIN [Suspect]
     Active Substance: BRENTUXIMAB VEDOTIN
     Indication: Prophylaxis
  33. BRENTUXIMAB VEDOTIN [Suspect]
     Active Substance: BRENTUXIMAB VEDOTIN
     Indication: Autologous haematopoietic stem cell transplant
  34. BRENTUXIMAB VEDOTIN [Suspect]
     Active Substance: BRENTUXIMAB VEDOTIN
     Indication: Peripheral T-cell lymphoma unspecified
  35. BRENTUXIMAB VEDOTIN [Suspect]
     Active Substance: BRENTUXIMAB VEDOTIN
     Indication: Peripheral T-cell lymphoma unspecified
  36. CYCLOPHOSPHAMIDE [Suspect]
     Active Substance: CYCLOPHOSPHAMIDE
     Indication: Chemotherapy
     Dosage: 750 MG/M IV D1, 6 CYCLES OF CHEPA
     Route: 042
     Dates: start: 20230330, end: 20230724
  37. CYCLOPHOSPHAMIDE [Suspect]
     Active Substance: CYCLOPHOSPHAMIDE
     Indication: Peripheral T-cell lymphoma unspecified
  38. CYCLOPHOSPHAMIDE [Suspect]
     Active Substance: CYCLOPHOSPHAMIDE
     Indication: Peripheral T-cell lymphoma unspecified
  39. CYCLOPHOSPHAMIDE [Suspect]
     Active Substance: CYCLOPHOSPHAMIDE
     Indication: Peripheral T-cell lymphoma unspecified
  40. CYCLOPHOSPHAMIDE [Suspect]
     Active Substance: CYCLOPHOSPHAMIDE
     Indication: Peripheral T-cell lymphoma unspecified
  41. PREDNISONE [Suspect]
     Active Substance: PREDNISONE
     Indication: Chemotherapy
     Dosage: CHEPA REGIMEN P.O
     Route: 048
     Dates: start: 20230330, end: 20230724
  42. PREDNISONE [Suspect]
     Active Substance: PREDNISONE
     Indication: Prophylaxis
  43. PREDNISONE [Suspect]
     Active Substance: PREDNISONE
     Indication: Autologous haematopoietic stem cell transplant
  44. PREDNISONE [Suspect]
     Active Substance: PREDNISONE
     Indication: Peripheral T-cell lymphoma unspecified
  45. PREDNISONE [Suspect]
     Active Substance: PREDNISONE
     Indication: Peripheral T-cell lymphoma unspecified

REACTIONS (3)
  - Stomatitis [Unknown]
  - Peripheral sensorimotor neuropathy [Unknown]
  - Off label use [Unknown]

NARRATIVE: CASE EVENT DATE: 20230906
